FAERS Safety Report 4866436-X (Version None)
Quarter: 2005Q4

REPORT INFORMATION
  Report Type: 
  Country: None (occurrence: None)
  Receive Date: 20051227
  Receipt Date: 20051122
  Transmission Date: 20060501
  Serious: Yes (Hospitalization)
  Sender: FDA-Public Use
  Company Number: US-MERCK-0511USA03867

PATIENT
  Age: 79 Year
  Sex: Female
  Weight: 81 kg

DRUGS (12)
  1. VIOXX [Suspect]
     Indication: ARTHRITIS
     Route: 048
     Dates: start: 19990101, end: 20031001
  2. VIOXX [Suspect]
     Indication: BACK PAIN
     Route: 048
     Dates: start: 19990101, end: 20031001
  3. COZAAR [Concomitant]
     Route: 065
  4. COUMADIN [Concomitant]
     Route: 065
  5. DITROPAN [Concomitant]
     Route: 065
  6. MICROZIDE [Concomitant]
     Route: 065
  7. TENORMIN [Concomitant]
     Route: 065
  8. ZANTAC [Concomitant]
     Route: 065
  9. CARDIZEM [Concomitant]
     Route: 065
  10. COLACE [Concomitant]
     Route: 065
  11. ENALAPRIL MALEATE [Concomitant]
     Route: 065
  12. ASPIRIN [Concomitant]
     Route: 065

REACTIONS (12)
  - ABDOMINAL PAIN [None]
  - ARTERIAL THROMBOSIS [None]
  - CEREBRAL ARTERY EMBOLISM [None]
  - CEREBRAL INFARCTION [None]
  - CEREBROVASCULAR ACCIDENT [None]
  - CHEST PAIN [None]
  - GASTROINTESTINAL DISORDER [None]
  - HEART VALVE INSUFFICIENCY [None]
  - INFECTION [None]
  - INTRACARDIAC THROMBUS [None]
  - PAIN IN EXTREMITY [None]
  - PLEURAL EFFUSION [None]
